FAERS Safety Report 9897665 (Version 2)
Quarter: 2014Q1

REPORT INFORMATION
  Report Type: Spontaneous
  Country: US (occurrence: US)
  Receive Date: 20140214
  Receipt Date: 20140304
  Transmission Date: 20141002
  Serious: No
  Sender: FDA-Public Use
  Company Number: US-B.I. PHARMACEUTICALS,INC./RIDGEFIELD-2014-BI-06369BP

PATIENT
  Age: 71 Year
  Sex: Female

DRUGS (9)
  1. SPIRIVA [Suspect]
     Indication: CHRONIC OBSTRUCTIVE PULMONARY DISEASE
     Dosage: 18 MCG
     Route: 055
  2. ADVAIR [Concomitant]
     Route: 055
  3. PRAVASTATIN [Concomitant]
     Route: 048
  4. PANTOPRAZOLE [Concomitant]
     Route: 048
  5. NEURX-TF [Concomitant]
     Indication: NEUROPATHY PERIPHERAL
     Route: 048
  6. PROAIR [Concomitant]
     Route: 055
  7. PLAVIX [Concomitant]
     Route: 048
  8. METOPROLOL [Concomitant]
     Indication: CARDIAC DISORDER
     Route: 048
  9. FUROSEMIDE [Concomitant]
     Route: 048

REACTIONS (3)
  - Dyspnoea [Recovered/Resolved]
  - Product quality issue [Recovered/Resolved]
  - Product quality issue [Recovered/Resolved]
